FAERS Safety Report 10110709 (Version 2)
Quarter: 2014Q2

REPORT INFORMATION
  Report Type: Report from Study
  Country: CA (occurrence: CA)
  Receive Date: 20140425
  Receipt Date: 20140529
  Transmission Date: 20141212
  Serious: Yes (Hospitalization)
  Sender: FDA-Public Use
  Company Number: CA-JNJFOC-20140416130

PATIENT
  Age: 32 Year
  Sex: Female

DRUGS (7)
  1. REMICADE [Suspect]
     Indication: CROHN^S DISEASE
     Dosage: LOADING DOSES WEEK 0,2,6 THEN EVERY 8 WEEKS
     Route: 042
     Dates: start: 20140410
  2. REMICADE [Suspect]
     Indication: COLITIS ULCERATIVE
     Dosage: LOADING DOSES WEEK 0,2,6 THEN EVERY 8 WEEKS
     Route: 042
     Dates: start: 20140410
  3. IMURAN [Concomitant]
     Route: 065
  4. INSULIN [Concomitant]
     Route: 065
  5. NYSTATIN [Concomitant]
     Route: 065
  6. ATIVAN [Concomitant]
     Route: 065
  7. TYLENOL WITH CODEINE [Concomitant]
     Route: 065

REACTIONS (2)
  - Malaise [Unknown]
  - Pyrexia [Unknown]
